FAERS Safety Report 16277721 (Version 2)
Quarter: 2019Q2

REPORT INFORMATION
  Report Type: Spontaneous
  Country: US (occurrence: US)
  Receive Date: 20190506
  Receipt Date: 20190513
  Transmission Date: 20190711
  Serious: No
  Sender: FDA-Public Use
  Company Number: US-AMGEN-USASP2019070188

PATIENT
  Age: 75 Year
  Sex: Female
  Weight: 63.95 kg

DRUGS (3)
  1. SENNA GEN [Suspect]
     Active Substance: SENNOSIDES
     Indication: CONSTIPATION
     Dosage: UNK (6 TABLETS EVERY TWO TO THREE DAYS)
     Route: 065
     Dates: start: 20190318
  2. SENNA GEN [Suspect]
     Active Substance: SENNOSIDES
     Indication: CONSTIPATION
  3. AIMOVIG [Suspect]
     Active Substance: ERENUMAB-AOOE
     Indication: MIGRAINE
     Dosage: 70 MILLIGRAM, QMO
     Route: 058
     Dates: start: 201902

REACTIONS (4)
  - Constipation [Recovered/Resolved]
  - Muscle spasms [Recovered/Resolved]
  - Acrochordon [Recovered/Resolved]
  - Pruritus [Recovered/Resolved]

NARRATIVE: CASE EVENT DATE: 20190314
